FAERS Safety Report 6981478-6 (Version None)
Quarter: 2010Q3

REPORT INFORMATION
  Report Type: 
  Country: None (occurrence: None)
  Receive Date: 20100914
  Receipt Date: 20100903
  Transmission Date: 20110219
  Serious: Yes (Death)
  Sender: FDA-Public Use
  Company Number: US-AMGEN-QUU432965

PATIENT
  Sex: Female
  Weight: 52.7 kg

DRUGS (4)
  1. NPLATE [Suspect]
     Indication: IDIOPATHIC THROMBOCYTOPENIC PURPURA
     Dates: start: 20091006, end: 20100105
  2. AVASTIN [Concomitant]
  3. CORTICOSTEROIDS [Concomitant]
     Dates: start: 20090808
  4. TAXOTERE [Concomitant]

REACTIONS (1)
  - OVARIAN CANCER METASTATIC [None]
